FAERS Safety Report 14830047 (Version 1)
Quarter: 2018Q2

REPORT INFORMATION
  Report Type: Spontaneous
  Country: JP (occurrence: JP)
  Receive Date: 20180430
  Receipt Date: 20180430
  Transmission Date: 20180711
  Serious: Yes (Other)
  Sender: FDA-Public Use
  Company Number: JP-PFIZER INC-2018165773

PATIENT
  Age: 91 Year
  Sex: Male

DRUGS (3)
  1. SAMSCA [Suspect]
     Active Substance: TOLVAPTAN
     Indication: CARDIAC FAILURE
     Dosage: 7.5 MG, 1X/DAY
     Route: 048
     Dates: start: 20180130, end: 20180205
  2. ALDACTONE A [Suspect]
     Active Substance: SPIRONOLACTONE
     Dosage: 25 MG, 1X/DAY
     Route: 048
     Dates: start: 20180129
  3. LASIX [Suspect]
     Active Substance: FUROSEMIDE
     Dosage: 40 MG, 1X/DAY
     Route: 048
     Dates: start: 20180129

REACTIONS (1)
  - Hypernatraemia [Recovering/Resolving]

NARRATIVE: CASE EVENT DATE: 20180205
